FAERS Safety Report 10508664 (Version 5)
Quarter: 2015Q2

REPORT INFORMATION
  Report Type: Spontaneous
  Country: US (occurrence: US)
  Receive Date: 20141009
  Receipt Date: 20150508
  Transmission Date: 20150821
  Serious: Yes (Hospitalization, Other)
  Sender: FDA-Public Use
  Company Number: US-009507513-1410USA004078

PATIENT
  Sex: Female

DRUGS (4)
  1. FOSAMAX [Suspect]
     Active Substance: ALENDRONATE SODIUM
     Indication: OSTEOPENIA
     Dosage: 70 MG, QW
     Route: 048
     Dates: start: 20040817, end: 20070228
  2. ALENDRONATE SODIUM. [Suspect]
     Active Substance: ALENDRONATE SODIUM
     Indication: OSTEOPOROSIS
     Dosage: 70 MG, QW
     Route: 048
     Dates: start: 20090317, end: 201210
  3. FOSAMAX [Suspect]
     Active Substance: ALENDRONATE SODIUM
     Indication: OSTEOPOROSIS
  4. FOSAMAX PLUS D [Suspect]
     Active Substance: ALENDRONATE SODIUM\CHOLECALCIFEROL
     Indication: OSTEOPOROSIS
     Dosage: 70MG/2800IU QW
     Route: 048
     Dates: start: 20070328, end: 20090317

REACTIONS (11)
  - Nasal septum deviation [Unknown]
  - Facet joint block [Unknown]
  - Femur fracture [Unknown]
  - Chronic sinusitis [Not Recovered/Not Resolved]
  - Spinal disorder [Unknown]
  - Scoliosis [Unknown]
  - Intramedullary rod insertion [Unknown]
  - Radicular pain [Unknown]
  - Sensory loss [Unknown]
  - Carpal tunnel syndrome [Unknown]
  - Arthropathy [Unknown]

NARRATIVE: CASE EVENT DATE: 20121023
